FAERS Safety Report 4702782-8 (Version None)
Quarter: 2005Q2

REPORT INFORMATION
  Report Type: 
  Country: None (occurrence: None)
  Receive Date: 20050629
  Receipt Date: 20050304
  Transmission Date: 20051028
  Serious: Yes (Life-Threatening, Disabling)
  Sender: FDA-Public Use
  Company Number: US-MERCK-0503USA00749

PATIENT
  Age: 48 Year
  Sex: Male
  Weight: 118 kg

DRUGS (4)
  1. VIOXX [Suspect]
     Indication: PAIN
     Route: 048
     Dates: start: 20020101, end: 20040101
  2. DURAGESIC-100 [Concomitant]
     Route: 065
  3. PAXIL [Concomitant]
     Route: 065
  4. HYZAAR [Concomitant]
     Route: 065

REACTIONS (4)
  - HEART RATE INCREASED [None]
  - HYPERTENSION [None]
  - MYOCARDIAL INFARCTION [None]
  - PULMONARY INFARCTION [None]
